FAERS Safety Report 8479738-5 (Version None)
Quarter: 2012Q2

REPORT INFORMATION
  Report Type: 
  Country: None (occurrence: None)
  Receive Date: 20120629
  Receipt Date: 20120622
  Transmission Date: 20120825
  Serious: Yes (Other)
  Sender: FDA-Public Use
  Company Number: CA-ROCHE-782329

PATIENT
  Sex: Male
  Weight: 93 kg

DRUGS (6)
  1. ZOPICLONE [Concomitant]
  2. VEMURAFENIB AND VEMURAFENIB [Suspect]
     Indication: MALIGNANT MELANOMA
     Dosage: LAST DOSE PRIOR TO SAE: 05 JAN 2011
     Route: 048
  3. VEMURAFENIB AND VEMURAFENIB [Suspect]
  4. ENTROPHEN [Concomitant]
  5. SLOW-K [Concomitant]
  6. NORVASC [Concomitant]

REACTIONS (2)
  - BOWEN'S DISEASE [None]
  - SQUAMOUS CELL CARCINOMA OF SKIN [None]
